FAERS Safety Report 12411949 (Version 2)
Quarter: 2016Q2

REPORT INFORMATION
  Report Type: Spontaneous
  Country: US (occurrence: US)
  Receive Date: 20160527
  Receipt Date: 20160615
  Transmission Date: 20160815
  Serious: Yes (Other)
  Sender: FDA-Public Use
  Company Number: US-NOVOPROD-493201

PATIENT
  Age: 90 Year
  Sex: Male

DRUGS (1)
  1. NOVOLIN N [Suspect]
     Active Substance: INSULIN HUMAN
     Indication: TYPE 2 DIABETES MELLITUS
     Dosage: 24 U, QD (14 U IN AM AND 10 U IN PM)
     Route: 058
     Dates: start: 1981, end: 20160523

REACTIONS (5)
  - Decreased appetite [Recovering/Resolving]
  - Coronary artery disease [Recovering/Resolving]
  - Blood glucose decreased [Recovering/Resolving]
  - Dementia [Not Recovered/Not Resolved]
  - Nausea [Recovering/Resolving]

NARRATIVE: CASE EVENT DATE: 2002
